FAERS Safety Report 16772568 (Version 1)
Quarter: 2019Q3

REPORT INFORMATION
  Report Type: Spontaneous
  Country: US (occurrence: US)
  Receive Date: 20190904
  Receipt Date: 20190904
  Transmission Date: 20191005
  Serious: Yes (Other)
  Sender: FDA-Public Use
  Company Number: PHHY2019US201518

PATIENT
  Sex: Male

DRUGS (2)
  1. TREPROSTINIL. [Suspect]
     Active Substance: TREPROSTINIL
     Dosage: 25 MG, TID
     Route: 048
  2. TREPROSTINIL. [Suspect]
     Active Substance: TREPROSTINIL
     Indication: PULMONARY ARTERIAL HYPERTENSION
     Dosage: 153 (NG/KG/MIN)
     Route: 058

REACTIONS (3)
  - Injection site pain [Unknown]
  - Hypoxia [Unknown]
  - Gastrointestinal disorder [Recovering/Resolving]
